FAERS Safety Report 18024475 (Version 1)
Quarter: 2020Q3

REPORT INFORMATION
  Report Type: Other
  Country: IT (occurrence: IT)
  Receive Date: 20200714
  Receipt Date: 20200714
  Transmission Date: 20201103
  Serious: Yes (Life-Threatening, Hospitalization, Disabling)
  Sender: FDA-Public Use
  Company Number: IT-NOSTRUM LABORATORIES, INC.-2087379

PATIENT
  Age: 49 Year
  Sex: Female

DRUGS (3)
  1. VALPROIC ACID. [Concomitant]
     Active Substance: VALPROIC ACID
     Route: 048
  2. QUETIAPINE. [Interacting]
     Active Substance: QUETIAPINE
     Route: 048
  3. TRAMADOL. [Suspect]
     Active Substance: TRAMADOL
     Indication: PRODUCT USED FOR UNKNOWN INDICATION
     Route: 048

REACTIONS (9)
  - Intentional overdose [Recovered/Resolved with Sequelae]
  - Intensive care unit acquired weakness [Unknown]
  - Acute kidney injury [Recovering/Resolving]
  - Respiratory failure [Recovered/Resolved with Sequelae]
  - Shock [Recovered/Resolved with Sequelae]
  - Cardiogenic shock [Recovered/Resolved with Sequelae]
  - Acute hepatic failure [Recovered/Resolved]
  - Tracheostomy [Unknown]
  - Thrombocytopenia [Unknown]
